FAERS Safety Report 9627998 (Version 3)
Quarter: 2013Q4

REPORT INFORMATION
  Report Type: Report from Study
  Country: DE (occurrence: DE)
  Receive Date: 20131016
  Receipt Date: 20131115
  Transmission Date: 20140711
  Serious: Yes (Life-Threatening, Hospitalization, Other)
  Sender: FDA-Public Use
  Company Number: DE-PFIZER INC-2013289035

PATIENT
  Age: 64 Year
  Sex: Male
  Weight: 59 kg

DRUGS (10)
  1. TEMSIROLIMUS [Suspect]
     Dosage: 25 MG, CYCLIC (ON DAY 1 AND DAY 8)
     Dates: start: 20130910
  2. CISPLATIN [Concomitant]
     Dosage: 170 MG, UNK
     Dates: start: 20130912, end: 20131006
  3. RITUXIMAB [Concomitant]
     Dosage: 637.5 MG, UNK
     Dates: start: 20130911, end: 20131005
  4. DEXAMETHASONE [Concomitant]
     Dosage: 40 MG, UNK
     Dates: start: 20130912, end: 20131006
  5. CYTARABINE [Concomitant]
     Dosage: 6900 MG, 2X/DAY
     Dates: start: 20130913, end: 20131007
  6. METFORMIN [Concomitant]
     Dosage: 1000 MG, DAILY
  7. JANUVIA [Concomitant]
     Dosage: 50 MG, UNK
  8. SIMVASTATIN [Concomitant]
     Dosage: 20 MG, DAILY
  9. PANTOZOL [Concomitant]
     Dosage: 40 MG, DAILY
  10. ALLOPURINOL [Concomitant]
     Dosage: 300 MG, DAILY

REACTIONS (2)
  - Vena cava thrombosis [Unknown]
  - Jugular vein thrombosis [Recovered/Resolved]
